FAERS Safety Report 18444903 (Version 14)
Quarter: 2025Q4

REPORT INFORMATION
  Report Type: Report from Study
  Country: JP (occurrence: JP)
  Receive Date: 20201030
  Receipt Date: 20251209
  Transmission Date: 20260117
  Serious: Yes (Hospitalization, Other)
  Sender: ABBVIE
  Company Number: JP-TAKEDA-2020TJP023012AA

PATIENT
  Age: 66 Year
  Sex: Male
  Weight: 69 kg

DRUGS (51)
  1. LEUPROLIDE ACETATE [Suspect]
     Active Substance: LEUPROLIDE ACETATE
     Indication: Bulbospinal muscular atrophy congenital
     Dosage: FORM STRENGTH:11.25 MILLIGRAM, EVERY 3 MONTHS?1ST INJECTION
     Route: 058
     Dates: start: 20170912, end: 20220413
  2. LEUPROLIDE ACETATE [Suspect]
     Active Substance: LEUPROLIDE ACETATE
     Dosage: 2ND INJECTION
     Route: 058
     Dates: start: 20171221
  3. LEUPROLIDE ACETATE [Suspect]
     Active Substance: LEUPROLIDE ACETATE
     Dosage: 11TH INJECTION
     Route: 058
     Dates: start: 20200311
  4. LEUPROLIDE ACETATE [Suspect]
     Active Substance: LEUPROLIDE ACETATE
     Dosage: 12TH INJECTION
     Route: 058
     Dates: start: 20200603
  5. LEUPROLIDE ACETATE [Suspect]
     Active Substance: LEUPROLIDE ACETATE
     Dosage: 13TH INJECTION
     Route: 058
     Dates: start: 20200826
  6. LEUPROLIDE ACETATE [Suspect]
     Active Substance: LEUPROLIDE ACETATE
     Dosage: 14TH INJECTION
     Route: 058
     Dates: start: 20201108
  7. LEUPROLIDE ACETATE [Suspect]
     Active Substance: LEUPROLIDE ACETATE
     Dosage: 15TH INJECTION
     Route: 058
     Dates: start: 20210210
  8. LEUPROLIDE ACETATE [Suspect]
     Active Substance: LEUPROLIDE ACETATE
     Dosage: 16TH INJECTION
     Route: 058
     Dates: start: 20210512
  9. LEUPROLIDE ACETATE [Suspect]
     Active Substance: LEUPROLIDE ACETATE
     Dosage: 18TH INJECTION
     Route: 058
     Dates: start: 20230607
  10. LEUPROLIDE ACETATE [Suspect]
     Active Substance: LEUPROLIDE ACETATE
     Dosage: 19TH INJECTION
     Route: 058
     Dates: start: 20230830
  11. LEUPROLIDE ACETATE [Suspect]
     Active Substance: LEUPROLIDE ACETATE
     Dosage: 3RD INJECTION
     Route: 058
     Dates: start: 20180327
  12. LEUPROLIDE ACETATE [Suspect]
     Active Substance: LEUPROLIDE ACETATE
     Dosage: 4TH INJECTION
     Route: 058
     Dates: start: 20180703
  13. LEUPROLIDE ACETATE [Suspect]
     Active Substance: LEUPROLIDE ACETATE
     Dosage: 5TH INJECTION
     Route: 058
     Dates: start: 20181009
  14. LEUPROLIDE ACETATE [Suspect]
     Active Substance: LEUPROLIDE ACETATE
     Dosage: 6TH INJECTION
     Route: 058
     Dates: start: 20190116
  15. LEUPROLIDE ACETATE [Suspect]
     Active Substance: LEUPROLIDE ACETATE
     Dosage: 7TH INJECTION
     Route: 058
     Dates: start: 20190410
  16. LEUPROLIDE ACETATE [Suspect]
     Active Substance: LEUPROLIDE ACETATE
     Dosage: 8TH INJECTION
     Route: 058
     Dates: start: 20190703
  17. LEUPROLIDE ACETATE [Suspect]
     Active Substance: LEUPROLIDE ACETATE
     Dosage: 9TH INJECTION
     Route: 058
     Dates: start: 20190925
  18. LEUPROLIDE ACETATE [Suspect]
     Active Substance: LEUPROLIDE ACETATE
     Dosage: 10TH INJECTION
     Route: 058
     Dates: start: 20191218
  19. LEUPROLIDE ACETATE [Suspect]
     Active Substance: LEUPROLIDE ACETATE
     Dosage: 17TH INJECTION
     Route: 058
     Dates: start: 20220413
  20. REBAMIPIDE [Concomitant]
     Active Substance: REBAMIPIDE
     Indication: Prophylaxis
     Dosage: FORM STRENGTH:300 MILLIGRAM
     Route: 065
     Dates: start: 20190123, end: 20190326
  21. REBAMIPIDE [Concomitant]
     Active Substance: REBAMIPIDE
     Indication: Prophylaxis
     Dosage: FORM STRENGTH:300 MILLIGRAM
     Route: 065
     Dates: start: 20180308, end: 20180314
  22. CARBOCYSTEINE [Concomitant]
     Active Substance: CARBOCYSTEINE
     Indication: Product used for unknown indication
     Dosage: 750 MILLIGRAM
     Route: 065
     Dates: start: 20250404
  23. INDAPAMIDE [Concomitant]
     Active Substance: INDAPAMIDE
     Indication: Hypertension
     Dosage: FORM STRENGTH:2 MILLIGRAM
     Route: 065
  24. METHYLCOBALAMIN [Concomitant]
     Active Substance: METHYLCOBALAMIN
     Indication: Neuropathy peripheral
     Dosage: FORM STRENGTH: 3 MILLIGRAM
     Route: 065
  25. .ALPHA.-TOCOPHEROL ACETATE [Concomitant]
     Active Substance: .ALPHA.-TOCOPHEROL ACETATE
     Indication: Peripheral vascular disorder
     Dosage: 150 MILLIGRAM
     Route: 065
  26. PEMAFIBRATE [Concomitant]
     Active Substance: PEMAFIBRATE
     Indication: Product used for unknown indication
     Dosage: FORM STRENGTH:0.2 MILLIGRAM
     Route: 065
     Dates: start: 20240823
  27. MAGNESIUM OXIDE [Concomitant]
     Active Substance: MAGNESIUM OXIDE
     Indication: Constipation
     Dosage: FORM STRENGTH:990 MILLIGRAM
     Route: 065
  28. SHAKUYAKUKANZOTO [Concomitant]
     Active Substance: HERBALS
     Indication: Muscle spasms
     Dosage: FORM STRENGTH:2 GRAM
     Route: 065
     Dates: end: 20191217
  29. SHAKUYAKUKANZOTO [Concomitant]
     Active Substance: HERBALS
     Indication: Muscle spasms
     Dosage: FORM STRENGTH:2.5 GRAM
     Route: 065
     Dates: start: 20191217, end: 20191218
  30. SHAKUYAKUKANZOTO [Concomitant]
     Active Substance: HERBALS
     Indication: Muscle spasms
     Dosage: 2 GRAM
     Route: 065
     Dates: start: 20240329
  31. BEZAFIBRATE [Concomitant]
     Active Substance: BEZAFIBRATE
     Indication: Product used for unknown indication
     Dosage: FORM STRENGTH:400 MILLIGRAM
     Route: 065
     Dates: end: 20240822
  32. BROMHEXINE HYDROCHLORIDE [Concomitant]
     Active Substance: BROMHEXINE HYDROCHLORIDE
     Indication: Bronchitis chronic
     Dosage: FORM STRENGTH:12 MILLIGRAM
     Route: 065
     Dates: end: 20231122
  33. ASPIRIN [Concomitant]
     Active Substance: ASPIRIN
     Indication: Angina pectoris
     Dosage: FORM STRENGTH:100 MILLIGRAM
     Route: 065
  34. SENNOSIDES A AND B [Concomitant]
     Active Substance: SENNOSIDES A AND B
     Indication: Constipation
     Dosage: FORM STRENGTH:24 MILLIGRAM
     Route: 065
     Dates: end: 20240329
  35. BROTIZOLAM [Concomitant]
     Active Substance: BROTIZOLAM
     Indication: Insomnia
     Dosage: FORM STRENGTH:0.25 MILLIGRAM
     Route: 065
     Dates: end: 20210803
  36. BROTIZOLAM [Concomitant]
     Active Substance: BROTIZOLAM
     Indication: Insomnia
     Dosage: FORM STRENGTH:0.5 MILLIGRAM
     Route: 065
     Dates: start: 20210804, end: 20241022
  37. KETOPROFEN [Concomitant]
     Active Substance: KETOPROFEN
     Indication: Periarthritis
     Route: 065
     Dates: end: 20181009
  38. LOXOPROFEN SODIUM [Concomitant]
     Active Substance: LOXOPROFEN SODIUM
     Indication: Spinal osteoarthritis
     Dosage: FORM STRENGTH:180 MILLIGRAM
     Route: 065
     Dates: start: 20180308, end: 20180314
  39. LOXOPROFEN SODIUM [Concomitant]
     Active Substance: LOXOPROFEN SODIUM
     Indication: Spinal osteoarthritis
     Dosage: FORM STRENGTH:180 MILLIGRAM
     Dates: start: 20190123, end: 20190326
  40. ROSUVASTATIN CALCIUM [Concomitant]
     Active Substance: ROSUVASTATIN CALCIUM
     Indication: Product used for unknown indication
     Dosage: FORM STRENGTH:2.5 MILLIGRAM?DOSE FORM: ORODISPERSIBLE TABLET
     Route: 065
  41. FELBINAC [Concomitant]
     Active Substance: FELBINAC
     Indication: Product used for unknown indication
     Route: 065
     Dates: start: 20190123, end: 20190326
  42. LOXOPROFEN SODIUM [Concomitant]
     Active Substance: LOXOPROFEN SODIUM
     Indication: Product used for unknown indication
     Route: 065
     Dates: start: 20190703
  43. XELODA [Suspect]
     Active Substance: CAPECITABINE
     Indication: Colon cancer
     Route: 065
     Dates: start: 20220610
  44. OXALIPLATIN [Suspect]
     Active Substance: OXALIPLATIN
     Indication: Lung neoplasm malignant
     Route: 065
     Dates: start: 20220610, end: 20220701
  45. AZILSARTAN KAMEDOXOMIL [Concomitant]
     Active Substance: AZILSARTAN KAMEDOXOMIL
     Indication: Hypertension
     Dosage: FORM STRENGTH:40 MILLIGRAM
     Route: 065
  46. AMBROXOL HYDROCHLORIDE [Concomitant]
     Active Substance: AMBROXOL HYDROCHLORIDE
     Indication: Product used for unknown indication
     Dosage: FORM STRENGTH: 45 MILLIGRAM
     Route: 065
  47. DAYVIGO [Concomitant]
     Active Substance: LEMBOREXANT
     Indication: Product used for unknown indication
     Dosage: FORM STRENGTH:5 MILLIGRAM
     Route: 065
     Dates: start: 20240731, end: 20241022
  48. BROTIZOLAM [Concomitant]
     Active Substance: BROTIZOLAM
     Indication: Insomnia
     Dosage: 0.25 MILLIGRAM?DOSE FORM : ORODISPERSIBLE TABLET
     Route: 065
     Dates: start: 20241023
  49. LANSOPRAZOLE [Concomitant]
     Active Substance: LANSOPRAZOLE
     Indication: Product used for unknown indication
     Dosage: FORM STRENGTH: 15 MILLIGRAM?DOSE FROM: ORODISPERSIBLE TABLET
     Route: 065
  50. AMLODIPINE [Concomitant]
     Active Substance: AMLODIPINE BESYLATE
     Indication: Hypertension
     Dosage: FORM STRENGTH: 10 MILLIGRAM?DOSE FROM: ORODISPERSIBLE TABLET
     Route: 065
  51. BELSOMRA [Concomitant]
     Active Substance: SUVOREXANT
     Indication: Product used for unknown indication
     Dosage: 15 MILLIGRAM
     Route: 065
     Dates: start: 20241023

REACTIONS (12)
  - Lung neoplasm malignant [Recovering/Resolving]
  - Lung neoplasm malignant [Recovering/Resolving]
  - Muscular weakness [Recovering/Resolving]
  - Colon cancer [Recovering/Resolving]
  - Nerve injury [Recovering/Resolving]
  - Decreased appetite [Recovered/Resolved]
  - Hyperhidrosis [Recovered/Resolved]
  - Anaphylactic reaction [Recovered/Resolved]
  - Supraventricular tachycardia [Recovered/Resolved]
  - Iron deficiency anaemia [Not Recovered/Not Resolved]
  - Benign prostatic hyperplasia [Recovering/Resolving]
  - Osteoporosis [Not Recovered/Not Resolved]

NARRATIVE: CASE EVENT DATE: 20200221
